FAERS Safety Report 4656596-8 (Version None)
Quarter: 2005Q2

REPORT INFORMATION
  Report Type: 
  Country: None (occurrence: None)
  Receive Date: 20050506
  Receipt Date: 20050428
  Transmission Date: 20051028
  Serious: Yes (Disabling, Congenital Anomaly, Other)
  Sender: FDA-Public Use
  Company Number: 200510348BVD

PATIENT
  Sex: Male

DRUGS (3)
  1. ASS VON CT (ACETYLSALICYLIC ACID) [Suspect]
     Indication: PROTEIN S DEFICIENCY
     Dosage: 100 MG, TOTAL, DAILY, TRANSPLACENTAL
     Route: 064
     Dates: start: 20010503
  2. ENOXAPARIN SODIUM [Concomitant]
  3. FOLIO [Concomitant]

REACTIONS (3)
  - CONGENITAL HYDROCEPHALUS [None]
  - DRUG EXPOSURE DURING PREGNANCY [None]
  - HEART DISEASE CONGENITAL [None]
